FAERS Safety Report 6779087-7 (Version None)
Quarter: 2010Q2

REPORT INFORMATION
  Report Type: 
  Country: None (occurrence: None)
  Receive Date: 20100618
  Receipt Date: 20100615
  Transmission Date: 20101027
  Serious: Yes (Life-Threatening, Hospitalization)
  Sender: FDA-Public Use
  Company Number: IN-ELI_LILLY_AND_COMPANY-IN201006002449

PATIENT
  Sex: Female
  Weight: 63 kg

DRUGS (8)
  1. GEMCITABINE HYDROCHLORIDE [Suspect]
     Indication: BREAST CANCER METASTATIC
     Dosage: 1000 MG/M2, ON DAY ONE AND 8 EVERY 3 WEEKS
     Route: 042
     Dates: start: 20100224
  2. GEMCITABINE HYDROCHLORIDE [Suspect]
     Dosage: 562.5 MG/M2, ON DAY 1 AND 8 EVERY 3 WEEKS
     Route: 042
     Dates: start: 20100528
  3. VINFLUNINE [Suspect]
     Indication: BREAST CANCER METASTATIC
     Dosage: 320 MG/M2, ON DAY 1 ONE EVERY 3 WEEKS
     Route: 042
     Dates: start: 20100224
  4. VINFLUNINE [Suspect]
     Dosage: 250 MG/M2, ON DAY 1 EVERY 3 WEEKS
     Dates: start: 20100528
  5. SUPRADYN [Concomitant]
     Dates: start: 20100430
  6. BETADINE [Concomitant]
     Dates: start: 20100224
  7. FLUCONAZOLE [Concomitant]
     Dosage: UNK, UNK
     Dates: start: 20100228, end: 20100606
  8. NEUPOGEN [Concomitant]

REACTIONS (12)
  - ANAEMIA [None]
  - ASTHENIA [None]
  - CHEST PAIN [None]
  - COUGH [None]
  - DIZZINESS [None]
  - FATIGUE [None]
  - FIBRIN D DIMER INCREASED [None]
  - HYPOALBUMINAEMIA [None]
  - HYPOCALCAEMIA [None]
  - HYPONATRAEMIA [None]
  - LEUKOPENIA [None]
  - THROMBOCYTOPENIA [None]
